FAERS Safety Report 11363533 (Version 1)
Quarter: 2015Q3

REPORT INFORMATION
  Report Type: Spontaneous
  Country: US (occurrence: US)
  Receive Date: 20150811
  Receipt Date: 20150811
  Transmission Date: 20151125
  Serious: No
  Sender: FDA-Public Use
  Company Number: US-009507513-1508USA003313

PATIENT
  Age: 61 Year
  Sex: Female

DRUGS (2)
  1. BELSOMRA [Suspect]
     Active Substance: SUVOREXANT
     Indication: INSOMNIA
     Dosage: 20 MG, QD
     Route: 048
  2. NEUPRO [Concomitant]
     Active Substance: ROTIGOTINE
     Dosage: UNK

REACTIONS (2)
  - Restless legs syndrome [Recovered/Resolved]
  - Drug ineffective [Recovered/Resolved]
